FAERS Safety Report 13880356 (Version 5)
Quarter: 2017Q4

REPORT INFORMATION
  Report Type: Report from Study
  Country: KR (occurrence: KR)
  Receive Date: 20170818
  Receipt Date: 20171031
  Transmission Date: 20180320
  Serious: Yes (Death, Hospitalization)
  Sender: FDA-Public Use
  Company Number: KR-PFIZER INC-2017098162

PATIENT
  Age: 69 Year
  Sex: Male
  Weight: 54 kg

DRUGS (8)
  1. OXALIPLATIN. [Suspect]
     Active Substance: OXALIPLATIN
     Dosage: 133 MG, CYCLIC (EVERY 2 WEEKS)
     Route: 042
     Dates: start: 20170208, end: 20170208
  2. FLUOROURACIL. [Suspect]
     Active Substance: FLUOROURACIL
     Dosage: 4056 MG, CYCLIC (EVERY 2 WEEKS)
     Route: 042
     Dates: start: 20170208, end: 20170208
  3. FLUOROURACIL. [Suspect]
     Active Substance: FLUOROURACIL
     Dosage: 4004 MG, CYCLIC (EVERY 2 WEEKS)
     Route: 042
  4. OXALIPLATIN. [Suspect]
     Active Substance: OXALIPLATIN
     Indication: ADENOCARCINOMA GASTRIC
     Dosage: 131 MG, CYCLIC (EVERY 2 WEEKS)
     Route: 042
     Dates: start: 20161122
  5. OXALIPLATIN. [Suspect]
     Active Substance: OXALIPLATIN
     Dosage: 131 MG, CYCLIC (EVERY 2 WEEKS)
     Route: 042
  6. OXALIPLATIN. [Suspect]
     Active Substance: OXALIPLATIN
     Dosage: 131 MG, CYCLIC (EVERY 2 WEEKS)
     Route: 042
  7. LEUCOVORIN /00566701/ [Concomitant]
     Active Substance: LEUCOVORIN
     Indication: ADENOCARCINOMA GASTRIC
     Dosage: UNK, CYCLIC (ONCE EVERY 2 WEEKS)
     Route: 042
  8. FLUOROURACIL. [Suspect]
     Active Substance: FLUOROURACIL
     Indication: ADENOCARCINOMA GASTRIC
     Dosage: 4004 MG, CYCLIC (EVERY 2 WEEKS)
     Route: 042
     Dates: start: 20161122

REACTIONS (3)
  - Subdural haemorrhage [Not Recovered/Not Resolved]
  - Sepsis [Not Recovered/Not Resolved]
  - Subarachnoid haemorrhage [Fatal]

NARRATIVE: CASE EVENT DATE: 20170222
